FAERS Safety Report 19496419 (Version 1)
Quarter: 2021Q3

REPORT INFORMATION
  Report Type: Spontaneous
  Country: US (occurrence: US)
  Receive Date: 20210706
  Receipt Date: 20210706
  Transmission Date: 20211014
  Serious: Yes (Life-Threatening, Hospitalization, Other)
  Sender: FDA-Public Use
  Company Number: US-HIKMA PHARMACEUTICALS USA INC.-US-H14001-21-54776

PATIENT
  Age: 89 Year
  Sex: Female

DRUGS (5)
  1. FLECAINIDE [Suspect]
     Active Substance: FLECAINIDE
     Indication: ATRIAL FIBRILLATION
  2. METOPROLOL. [Concomitant]
     Active Substance: METOPROLOL
     Indication: ATRIAL FLUTTER
     Dosage: UNKNOWN
     Route: 065
  3. FLECAINIDE [Suspect]
     Active Substance: FLECAINIDE
     Indication: ATRIAL FLUTTER
     Route: 065
  4. FUROSEMIDE. [Concomitant]
     Active Substance: FUROSEMIDE
     Indication: PRODUCT USED FOR UNKNOWN INDICATION
     Route: 065
  5. METOPROLOL. [Concomitant]
     Active Substance: METOPROLOL
     Indication: ATRIAL FIBRILLATION

REACTIONS (7)
  - Ventricular dyssynchrony [Recovering/Resolving]
  - Atrial conduction time prolongation [Recovering/Resolving]
  - Toxicity to various agents [Recovering/Resolving]
  - Dyspnoea [Recovering/Resolving]
  - Visual impairment [Recovering/Resolving]
  - Balance disorder [Recovering/Resolving]
  - Pacemaker syndrome [Recovering/Resolving]
